FAERS Safety Report 10479453 (Version 1)
Quarter: 2014Q3

REPORT INFORMATION
  Report Type: Report from Study
  Country: BR (occurrence: BR)
  Receive Date: 20140926
  Receipt Date: 20140926
  Transmission Date: 20150326
  Serious: Yes (Death, Other)
  Sender: FDA-Public Use
  Company Number: PHHY2014BR126032

PATIENT
  Sex: Male
  Weight: 78 kg

DRUGS (5)
  1. EXELON PATCH [Suspect]
     Active Substance: RIVASTIGMINE
     Indication: MENTAL DISORDER
     Dosage: 9.5 MG, DAILY (10 CM2)
     Route: 062
  2. EXELON PATCH [Suspect]
     Active Substance: RIVASTIGMINE
     Indication: DEMENTIA
  3. DRUG THERAPY NOS [Suspect]
     Active Substance: UNSPECIFIED INGREDIENT
     Indication: CARDIAC DISORDER
  4. EXELON PATCH [Suspect]
     Active Substance: RIVASTIGMINE
     Indication: HALLUCINATION
  5. DRUG THERAPY NOS [Suspect]
     Active Substance: UNSPECIFIED INGREDIENT
     Indication: BLOOD URIC ACID INCREASED

REACTIONS (10)
  - Blood uric acid increased [Unknown]
  - Terminal state [Unknown]
  - Asthenia [Unknown]
  - Pyrexia [Unknown]
  - Cardiac disorder [Unknown]
  - Organ failure [Fatal]
  - Abasia [Unknown]
  - Choking [Unknown]
  - Pneumonia [Fatal]
  - Snoring [Unknown]
